FAERS Safety Report 6813542-6 (Version None)
Quarter: 2010Q3

REPORT INFORMATION
  Report Type: 
  Country: None (occurrence: None)
  Receive Date: 20100701
  Receipt Date: 20100622
  Transmission Date: 20110219
  Serious: Yes (Hospitalization)
  Sender: FDA-Public Use
  Company Number: US-BAXTER-2010BH016905

PATIENT
  Sex: Male

DRUGS (1)
  1. DIANEAL [Suspect]
     Indication: PERITONEAL DIALYSIS
     Route: 033

REACTIONS (5)
  - ATRIOVENTRICULAR BLOCK COMPLETE [None]
  - HYPERTENSION [None]
  - RENAL FAILURE CHRONIC [None]
  - SYNCOPE [None]
  - SYSTEMIC LUPUS ERYTHEMATOSUS [None]
